FAERS Safety Report 18321102 (Version 2)
Quarter: 2020Q4

REPORT INFORMATION
  Report Type: Report from Study
  Country: None (occurrence: US)
  Receive Date: 20200929
  Receipt Date: 20201128
  Transmission Date: 20210113
  Serious: Yes (Hospitalization, Other)
  Sender: FDA-Public Use
  Company Number: US-ABBVIE-20K-163-3579959-00

PATIENT
  Sex: Female
  Weight: 145.28 kg

DRUGS (2)
  1. HUMIRA [Suspect]
     Active Substance: ADALIMUMAB
     Indication: RHEUMATOID ARTHRITIS
     Route: 058
  2. HUMIRA [Suspect]
     Active Substance: ADALIMUMAB
     Route: 058

REACTIONS (4)
  - Arthralgia [Recovering/Resolving]
  - Pain in extremity [Recovered/Resolved]
  - Sleep apnoea syndrome [Recovered/Resolved]
  - Interstitial lung disease [Recovering/Resolving]
